FAERS Safety Report 20221585 (Version 1)
Quarter: 2021Q4

REPORT INFORMATION
  Report Type: Other
  Country: FR (occurrence: None)
  Receive Date: 20211223
  Receipt Date: 20211223
  Transmission Date: 20220304
  Serious: Yes (Other)
  Sender: FDA-Public Use
  Company Number: FR-ROCHE-2980889

PATIENT

DRUGS (4)
  1. VEMURAFENIB [Suspect]
     Active Substance: VEMURAFENIB
     Indication: Metastatic malignant melanoma
     Route: 065
  2. COBIMETINIB [Suspect]
     Active Substance: COBIMETINIB
     Indication: Metastatic malignant melanoma
     Route: 065
  3. DABRAFENIB [Suspect]
     Active Substance: DABRAFENIB
     Indication: Metastatic malignant melanoma
     Route: 065
  4. TRAMETINIB [Suspect]
     Active Substance: TRAMETINIB
     Indication: Metastatic malignant melanoma
     Route: 065

REACTIONS (71)
  - Dermatitis exfoliative generalised [Unknown]
  - Sepsis [Unknown]
  - Febrile neutropenia [Unknown]
  - Arthritis infective [Unknown]
  - Toxic epidermal necrolysis [Unknown]
  - Autoimmune disorder [Unknown]
  - Hemiparesis [Unknown]
  - Palmar-plantar erythrodysaesthesia syndrome [Unknown]
  - Rash maculo-papular [Unknown]
  - Dermatitis acneiform [Unknown]
  - Erythema multiforme [Unknown]
  - Alopecia [Unknown]
  - Dry skin [Unknown]
  - Photosensitivity reaction [Unknown]
  - Pruritus [Unknown]
  - Dysgeusia [Unknown]
  - Rash pustular [Unknown]
  - Skin hypopigmentation [Unknown]
  - Keratitis [Unknown]
  - Oedema [Unknown]
  - Dry mouth [Unknown]
  - Urticaria [Unknown]
  - Pain in extremity [Unknown]
  - Thermal burn [Unknown]
  - Localised oedema [Unknown]
  - Skin ulcer [Unknown]
  - Purpura [Unknown]
  - Rash pustular [Unknown]
  - Skin hyperpigmentation [Unknown]
  - Hypersensitivity [Unknown]
  - Hypertrichosis [Unknown]
  - Stomatitis [Unknown]
  - Musculoskeletal disorder [Unknown]
  - Arthralgia [Unknown]
  - Myalgia [Unknown]
  - Back pain [Unknown]
  - Arthritis [Unknown]
  - Bone pain [Unknown]
  - Lordosis [Unknown]
  - Joint range of motion decreased [Unknown]
  - Fatigue [Unknown]
  - Pyrexia [Unknown]
  - Headache [Unknown]
  - Pain [Unknown]
  - Chills [Unknown]
  - Decreased appetite [Unknown]
  - Weight decreased [Unknown]
  - Muscular weakness [Unknown]
  - Anxiety [Unknown]
  - Depression [Unknown]
  - Insomnia [Unknown]
  - Malaise [Unknown]
  - Hypothermia [Unknown]
  - Weight increased [Unknown]
  - Hypoacusis [Unknown]
  - Disturbance in attention [Unknown]
  - Ear disorder [Unknown]
  - Inner ear disorder [Unknown]
  - Infection [Unknown]
  - Skin infection [Unknown]
  - Infusion site extravasation [Unknown]
  - Pneumonitis [Unknown]
  - Urinary tract infection [Unknown]
  - Lip infection [Unknown]
  - Anaemia [Unknown]
  - Neutrophil count decreased [Unknown]
  - Lymphocyte count decreased [Unknown]
  - Platelet count decreased [Unknown]
  - Hyponatraemia [Unknown]
  - White blood cell count decreased [Unknown]
  - Lymphoedema [Unknown]
